FAERS Safety Report 7110312-9 (Version None)
Quarter: 2010Q4

REPORT INFORMATION
  Report Type: 
  Country: None (occurrence: None)
  Receive Date: 20101118
  Receipt Date: 20101013
  Transmission Date: 20110411
  Serious: No
  Sender: FDA-Public Use
  Company Number: A0877262A

PATIENT
  Age: 81 Year
  Sex: Female
  Weight: 67.3 kg

DRUGS (8)
  1. COREG CR [Suspect]
     Indication: VENTRICULAR ARRHYTHMIA
     Dosage: 20MG PER DAY
     Route: 048
  2. COREG CR [Suspect]
     Dosage: 10MG TWICE PER DAY
     Route: 048
  3. CORDARONE [Concomitant]
  4. LASIX [Concomitant]
  5. POTASSIUM CHLORIDE [Concomitant]
  6. NORVASC [Concomitant]
  7. SYNTHROID [Concomitant]
  8. PRAVASTATIN [Concomitant]

REACTIONS (6)
  - ANXIETY [None]
  - CHEST DISCOMFORT [None]
  - DRUG INEFFECTIVE [None]
  - FEELING ABNORMAL [None]
  - INSOMNIA [None]
  - PRODUCT QUALITY ISSUE [None]
